FAERS Safety Report 5984704-5 (Version None)
Quarter: 2008Q4

REPORT INFORMATION
  Report Type: 
  Country: None (occurrence: None)
  Receive Date: 20081208
  Receipt Date: 20081203
  Transmission Date: 20090506
  Serious: Yes (Hospitalization)
  Sender: FDA-Public Use
  Company Number: IN-ROXANE LABORATORIES, INC.-2008-RO-00326RO

PATIENT
  Age: 11 Year
  Sex: Female

DRUGS (2)
  1. CYCLOPHOSPHAMIDE [Suspect]
     Indication: RETINOBLASTOMA
  2. VINCRISTINE [Suspect]
     Indication: RETINOBLASTOMA

REACTIONS (1)
  - BONE SARCOMA [None]
